FAERS Safety Report 26067885 (Version 1)
Quarter: 2025Q4

REPORT INFORMATION
  Report Type: Spontaneous
  Country: US (occurrence: US)
  Receive Date: 20251120
  Receipt Date: 20251120
  Transmission Date: 20260118
  Serious: No
  Sender: BAUSCH AND LOMB
  Company Number: US-BAUSCHBL-2025BNL031967

PATIENT
  Age: 53 Year
  Sex: Female

DRUGS (4)
  1. MIEBO [Suspect]
     Active Substance: PERFLUOROHEXYLOCTANE
     Indication: Dry eye
     Route: 047
     Dates: start: 20250930
  2. CEQUA [Suspect]
     Active Substance: CYCLOSPORINE
     Indication: Dry eye
  3. TRYPTYR [Suspect]
     Active Substance: ACOLTREMON
     Indication: Dry eye
  4. VEVYE [Suspect]
     Active Substance: CYCLOSPORINE
     Indication: Dry eye

REACTIONS (4)
  - Photophobia [Recovering/Resolving]
  - Vision blurred [Recovering/Resolving]
  - Condition aggravated [Recovering/Resolving]
  - Drug ineffective [Unknown]
